FAERS Safety Report 10012436 (Version 9)
Quarter: 2016Q2

REPORT INFORMATION
  Report Type: Report from Study
  Country: US (occurrence: US)
  Receive Date: 20140314
  Receipt Date: 20160502
  Transmission Date: 20160815
  Serious: Yes (Hospitalization)
  Sender: FDA-Public Use
  Company Number: US-ACTELION-A-NJ2013-88588

PATIENT
  Age: 31 Year
  Sex: Female

DRUGS (16)
  1. POTASSIUM [Concomitant]
     Active Substance: POTASSIUM
     Dosage: UNK
  2. TYLENOL [Concomitant]
     Active Substance: ACETAMINOPHEN
     Dosage: UNK
  3. VELETRI [Suspect]
     Active Substance: EPOPROSTENOL
     Dosage: 16 NG/KG, PER MIN
     Route: 042
     Dates: start: 20130828
  4. VELETRI [Suspect]
     Active Substance: EPOPROSTENOL
     Dosage: 2 NG/KG, PER MIN
     Route: 042
     Dates: start: 20130822
  5. VELETRI [Suspect]
     Active Substance: EPOPROSTENOL
     Dosage: 30.5 NG/KG, PER MIN
     Route: 042
     Dates: start: 20160325
  6. VELETRI [Suspect]
     Active Substance: EPOPROSTENOL
     Indication: PULMONARY ARTERIAL HYPERTENSION
     Dosage: 22.8 NG/KG, PER MIN
     Route: 042
     Dates: start: 20130827
  7. TRACLEER [Suspect]
     Active Substance: BOSENTAN
     Dosage: 62.5 MG, BID
     Route: 048
     Dates: start: 20130311
  8. SERTRALINE [Concomitant]
     Active Substance: SERTRALINE HYDROCHLORIDE
  9. VELETRI [Suspect]
     Active Substance: EPOPROSTENOL
     Dosage: 24.8 NG/KG, PER MIN
     Route: 042
  10. GABAPENTIN. [Concomitant]
     Active Substance: GABAPENTIN
     Dosage: UNK
  11. VELETRI [Suspect]
     Active Substance: EPOPROSTENOL
     Dosage: 18 NG/KG, PER MIN
     Route: 042
  12. TRACLEER [Suspect]
     Active Substance: BOSENTAN
     Indication: PULMONARY ARTERIAL HYPERTENSION
     Dosage: 125 MG, BID
     Route: 048
     Dates: start: 20130313
  13. ADCIRCA [Concomitant]
     Active Substance: TADALAFIL
     Dosage: UNK
  14. FUROSEMIDE. [Concomitant]
     Active Substance: FUROSEMIDE
     Dosage: UNK
  15. IBUPROFEN. [Concomitant]
     Active Substance: IBUPROFEN
     Dosage: UNK
  16. IRON [Concomitant]
     Active Substance: IRON
     Dosage: UNK

REACTIONS (19)
  - Pain in jaw [Unknown]
  - Erythema [Unknown]
  - Catheter site pain [Unknown]
  - Dyspnoea [Unknown]
  - Heart rate increased [Unknown]
  - Headache [Unknown]
  - Catheter site swelling [Unknown]
  - Sepsis [Unknown]
  - Neuropathy peripheral [Unknown]
  - Catheter site infection [Unknown]
  - Catheter site rash [Unknown]
  - Diarrhoea [Unknown]
  - Product physical issue [Recovered/Resolved]
  - Catheter site haemorrhage [Unknown]
  - Dermatitis contact [Unknown]
  - Neck pain [Unknown]
  - Catheter site pruritus [Unknown]
  - Flushing [Unknown]
  - Catheter site urticaria [Unknown]

NARRATIVE: CASE EVENT DATE: 20160419
